FAERS Safety Report 25738422 (Version 1)
Quarter: 2025Q3

REPORT INFORMATION
  Report Type: Spontaneous
  Country: CA (occurrence: CA)
  Receive Date: 20250829
  Receipt Date: 20250829
  Transmission Date: 20251021
  Serious: Yes (Hospitalization)
  Sender: PHARMACOSMOS A/S
  Company Number: CA-NEBO-704654

PATIENT
  Age: 55 Year
  Sex: Male

DRUGS (1)
  1. MONOFERRIC [Suspect]
     Active Substance: FERRIC DERISOMALTOSE
     Indication: Blood iron decreased
     Dates: start: 20250717

REACTIONS (4)
  - Dizziness [Unknown]
  - Syncope [Unknown]
  - Arthralgia [Unknown]
  - Joint space narrowing [Unknown]

NARRATIVE: CASE EVENT DATE: 20250717
